FAERS Safety Report 8048683-1 (Version None)
Quarter: 2012Q1

REPORT INFORMATION
  Report Type: 
  Country: None (occurrence: None)
  Receive Date: 20120117
  Receipt Date: 20120111
  Transmission Date: 20120608
  Serious: Yes (Hospitalization)
  Sender: FDA-Public Use
  Company Number: US-JNJFOC-20120104230

PATIENT
  Age: 34 Year
  Sex: Female
  Weight: 72.58 kg

DRUGS (2)
  1. SUDAFED 24 HOUR [Suspect]
     Indication: NASOPHARYNGITIS
     Dosage: ONE TABLET, ONE TIME ONLY AROUND 7PM
     Route: 048
     Dates: start: 20120104, end: 20120104
  2. SUDAFED 24 HOUR [Suspect]
     Indication: NASAL CONGESTION
     Dosage: ONE TABLET, ONE TIME ONLY AROUND 7PM
     Route: 048
     Dates: start: 20120104, end: 20120104

REACTIONS (5)
  - PALPITATIONS [None]
  - PAIN IN EXTREMITY [None]
  - PAIN [None]
  - NERVOUSNESS [None]
  - INSOMNIA [None]
